FAERS Safety Report 5609853-2 (Version None)
Quarter: 2008Q1

REPORT INFORMATION
  Report Type: 
  Country: None (occurrence: None)
  Receive Date: 20080131
  Receipt Date: 20080118
  Transmission Date: 20080703
  Serious: Yes (Other)
  Sender: FDA-Public Use
  Company Number: FR-ELI_LILLY_AND_COMPANY-FR200712003258

PATIENT
  Age: 55 Year
  Sex: Female
  Weight: 70 kg

DRUGS (6)
  1. PROZAC [Suspect]
     Dosage: 20 MG, DAILY (1/D)
     Route: 048
     Dates: start: 20071206, end: 20071213
  2. AERIUS [Concomitant]
     Route: 065
  3. TANAKAN [Concomitant]
     Route: 065
  4. PAXELADINE [Concomitant]
     Route: 065
  5. VASTAREL [Concomitant]
     Route: 065
  6. QUIETILINE [Concomitant]
     Dosage: UNK, DAILY (1/D)
     Dates: start: 20071201

REACTIONS (1)
  - ANGLE CLOSURE GLAUCOMA [None]
